FAERS Safety Report 10948052 (Version 1)
Quarter: 2015Q1

REPORT INFORMATION
  Report Type: Spontaneous
  Country: ES (occurrence: ES)
  Receive Date: 20150324
  Receipt Date: 20150324
  Transmission Date: 20150721
  Serious: Yes (Other)
  Sender: FDA-Public Use
  Company Number: ES-CIPLA LTD.-2015ES02068

PATIENT

DRUGS (2)
  1. ATAZANAVIR/RITONAVIR (ATAZANAVIR, RITONAVIR) UNKNOWN [Suspect]
     Active Substance: ATAZANAVIR\RITONAVIR
     Indication: HIV INFECTION
     Dosage: 300/100 MG DAILY
  2. TENOFOVIR/EMTRICITABINE [Suspect]
     Active Substance: EMTRICITABINE\TENOFOVIR
     Indication: HIV INFECTION
     Dosage: ONCE DAILY

REACTIONS (1)
  - Non-Hodgkin^s lymphoma [Unknown]
